FAERS Safety Report 5934731-9 (Version None)
Quarter: 2008Q4

REPORT INFORMATION
  Report Type: 
  Country: None (occurrence: None)
  Receive Date: 20081029
  Receipt Date: 20081021
  Transmission Date: 20090506
  Serious: Yes (Hospitalization)
  Sender: FDA-Public Use
  Company Number: CA-B.I. PHARMACEUTICALS,INC./RIDGEFIELD-2008-CN-00554CN

PATIENT
  Sex: Male

DRUGS (3)
  1. FLOMAX [Suspect]
     Route: 048
     Dates: start: 20080101
  2. DIOVAN HCT [Concomitant]
     Dosage: 1 TABLET PER DAY
  3. XATRAL [Concomitant]

REACTIONS (3)
  - ABDOMINAL PAIN UPPER [None]
  - CONSTIPATION [None]
  - URINARY TRACT INFECTION [None]
